FAERS Safety Report 7294861-9 (Version None)
Quarter: 2011Q1

REPORT INFORMATION
  Report Type: 
  Country: None (occurrence: None)
  Receive Date: 20110207
  Receipt Date: 20110127
  Transmission Date: 20110831
  Serious: Yes (Other)
  Sender: FDA-Public Use
  Company Number: 026289

PATIENT
  Age: 66 Year
  Sex: Female
  Weight: 57.2 kg

DRUGS (4)
  1. MADOPAR /00349201/ [Concomitant]
  2. ROTIGOTINE (NEUPRO) [Suspect]
     Indication: PARKINSON'S DISEASE
     Dosage: 8 MG QD
     Dates: start: 20100401, end: 20101001
  3. AMITRIPTYLINE HCL [Concomitant]
  4. CLOMIPRAMINE HCL [Concomitant]

REACTIONS (6)
  - VISION BLURRED [None]
  - OBSESSIVE-COMPULSIVE DISORDER [None]
  - MUSCLE SPASMS [None]
  - WEIGHT DECREASED [None]
  - DECREASED APPETITE [None]
  - ANXIETY [None]
